FAERS Safety Report 7928224-7 (Version None)
Quarter: 2011Q4

REPORT INFORMATION
  Report Type: 
  Country: None (occurrence: None)
  Receive Date: 20111118
  Receipt Date: 20111108
  Transmission Date: 20120403
  Serious: Yes (Hospitalization)
  Sender: FDA-Public Use
  Company Number: FR-NOVOPROD-339090

PATIENT

DRUGS (6)
  1. UMULINE [Concomitant]
     Dosage: UNK
     Route: 058
  2. IRBESARTAN AND HYDROCHLOROTHIAZIDE [Suspect]
     Indication: HYPERTENSION
     Dosage: 81.25 MG, QD
     Route: 048
     Dates: end: 20110907
  3. NOVOLOG MIX 70/30 [Suspect]
     Indication: TYPE 2 DIABETES MELLITUS
     Dosage: 30 UI
     Route: 058
     Dates: end: 20110906
  4. FLUIDABAK [Concomitant]
     Dosage: EYEWASH
  5. METFORMIN HCL [Concomitant]
     Dosage: 700 MG, QD
     Route: 048
  6. TRUSOPT [Concomitant]
     Dosage: EYEWASH

REACTIONS (3)
  - HYPONATRAEMIA [None]
  - HYPOTENSION [None]
  - DEHYDRATION [None]
